FAERS Safety Report 25110698 (Version 1)
Quarter: 2025Q1

REPORT INFORMATION
  Report Type: Spontaneous
  Country: US (occurrence: US)
  Receive Date: 20250324
  Receipt Date: 20250324
  Transmission Date: 20250408
  Serious: Yes (Other)
  Sender: MERCK SHARP & DOHME LLC
  Company Number: US-009507513-2258863

PATIENT

DRUGS (1)
  1. WELIREG [Suspect]
     Active Substance: BELZUTIFAN

REACTIONS (1)
  - Hypoxia [Unknown]
